FAERS Safety Report 16903469 (Version 2)
Quarter: 2019Q4

REPORT INFORMATION
  Report Type: Spontaneous
  Country: US (occurrence: US)
  Receive Date: 20191010
  Receipt Date: 20191018
  Transmission Date: 20200122
  Serious: Yes (Congenital Anomaly, Other)
  Sender: FDA-Public Use
  Company Number: US-PFIZER INC-2019430331

PATIENT
  Sex: Male

DRUGS (1)
  1. METHOTREXATE SODIUM. [Suspect]
     Active Substance: METHOTREXATE SODIUM
     Dosage: UNK
     Route: 064

REACTIONS (8)
  - Clinodactyly [Unknown]
  - Chordee [Unknown]
  - Maternal exposure during pregnancy [Unknown]
  - Hypospadias [Unknown]
  - Anonychia [Unknown]
  - Foot deformity [Unknown]
  - Microcephaly [Unknown]
  - Skull malformation [Unknown]
